FAERS Safety Report 22147894 (Version 4)
Quarter: 2023Q2

REPORT INFORMATION
  Report Type: Report from Study
  Country: AR (occurrence: AR)
  Receive Date: 20230328
  Receipt Date: 20230630
  Transmission Date: 20230721
  Serious: Yes (Death, Other)
  Sender: FDA-Public Use
  Company Number: AR-TAKEDA-2023TUS031118

PATIENT
  Age: 43 Year
  Sex: Male
  Weight: 87 kg

DRUGS (6)
  1. LANADELUMAB [Suspect]
     Active Substance: LANADELUMAB
     Indication: Hereditary angioedema
     Dosage: UNK UNK, Q2WEEKS
     Route: 058
     Dates: start: 20210810
  2. LANADELUMAB [Suspect]
     Active Substance: LANADELUMAB
     Indication: Hereditary angioedema
     Dosage: UNK UNK, Q2WEEKS
     Route: 058
     Dates: start: 20210810
  3. LANADELUMAB [Suspect]
     Active Substance: LANADELUMAB
     Indication: Hereditary angioedema
     Dosage: UNK UNK, Q2WEEKS
     Route: 058
     Dates: start: 20210810
  4. FIRAZYR [Suspect]
     Active Substance: ICATIBANT ACETATE
     Indication: Product used for unknown indication
     Dosage: UNK, 1/WEEK
     Route: 065
  5. FIRAZYR [Suspect]
     Active Substance: ICATIBANT ACETATE
     Indication: Product used for unknown indication
     Dosage: UNK, 1/WEEK
     Route: 065
  6. AMLODIPINE [Concomitant]
     Active Substance: AMLODIPINE BESYLATE
     Indication: Hypertension
     Dosage: 10 MILLIGRAM, QD
     Route: 048

REACTIONS (10)
  - Adverse event [Fatal]
  - Ischaemic stroke [Unknown]
  - Cerebral infarction [Unknown]
  - Carotid artery disease [Unknown]
  - Carotid artery thrombosis [Unknown]
  - Brain death [Unknown]
  - Brain oedema [Unknown]
  - Arteriosclerosis coronary artery [Unknown]
  - Arterial occlusive disease [Unknown]
  - Mydriasis [Unknown]

NARRATIVE: CASE EVENT DATE: 20230320
